FAERS Safety Report 14184843 (Version 1)
Quarter: 2017Q4

REPORT INFORMATION
  Report Type: Spontaneous
  Country: US (occurrence: US)
  Receive Date: 20171113
  Receipt Date: 20171113
  Transmission Date: 20180321
  Serious: No
  Sender: FDA-Public Use
  Company Number: US-BAUSCH-BL-2017-001294

PATIENT
  Age: 62 Year
  Sex: Female
  Weight: 45.4 kg

DRUGS (1)
  1. ALAWAY [Suspect]
     Active Substance: KETOTIFEN FUMARATE
     Indication: PRODUCT USED FOR UNKNOWN INDICATION
     Dosage: 1 DROP IN EACH EYE
     Route: 047
     Dates: start: 20170111, end: 20170112

REACTIONS (1)
  - Instillation site pain [Unknown]

NARRATIVE: CASE EVENT DATE: 20170112
